FAERS Safety Report 15664714 (Version 1)
Quarter: 2018Q4

REPORT INFORMATION
  Report Type: Spontaneous
  Country: US (occurrence: US)
  Receive Date: 20181127
  Receipt Date: 20181127
  Transmission Date: 20190205
  Serious: No
  Sender: FDA-Public Use
  Company Number: None

PATIENT
  Age: 63 Year
  Sex: Female
  Weight: 70.65 kg

DRUGS (2)
  1. AMLODIPINE [Suspect]
     Active Substance: AMLODIPINE BESYLATE
     Indication: HYPERTENSION
     Dosage: ?          QUANTITY:30 TABLET(S);?
     Route: 048
     Dates: start: 20020808, end: 20181127
  2. IBUPROPHEN [Suspect]
     Active Substance: IBUPROFEN

REACTIONS (6)
  - Dizziness [None]
  - Sensory disturbance [None]
  - Chest pain [None]
  - Muscle tightness [None]
  - Arrhythmia [None]
  - Headache [None]
